FAERS Safety Report 7151301-8 (Version None)
Quarter: 2010Q4

REPORT INFORMATION
  Report Type: 
  Country: None (occurrence: None)
  Receive Date: 20101210
  Receipt Date: 20101202
  Transmission Date: 20110411
  Serious: Yes (Other)
  Sender: FDA-Public Use
  Company Number: JP-JNJFOC-20101203010

PATIENT
  Age: 6 Decade
  Sex: Male

DRUGS (2)
  1. DUROTEP MT [Suspect]
     Indication: PAIN MANAGEMENT
     Route: 062
  2. DUROTEP MT [Suspect]
     Route: 062

REACTIONS (3)
  - DELIRIUM [None]
  - HAEMORRHAGE SUBCUTANEOUS [None]
  - RESTLESSNESS [None]
